FAERS Safety Report 19902194 (Version 1)
Quarter: 2021Q3

REPORT INFORMATION
  Report Type: Spontaneous
  Country: NL (occurrence: NL)
  Receive Date: 20210930
  Receipt Date: 20210930
  Transmission Date: 20211014
  Serious: Yes (Hospitalization)
  Sender: FDA-Public Use
  Company Number: NL-ORGANON-O2109NLD001827

PATIENT
  Age: 70 Year
  Sex: Male
  Weight: 79 kg

DRUGS (7)
  1. EZETIMIBE (+) SIMVASTATIN [Suspect]
     Active Substance: EZETIMIBE\SIMVASTATIN
     Dosage: TABLET, 10/20 MG (MILLIGRAM)
  2. PROPRANOLOL [Concomitant]
     Active Substance: PROPRANOLOL HYDROCHLORIDE
     Dosage: TABLET, 10 MG (MILLIGRAM)
  3. VITAMINE B COMPLEX [Concomitant]
     Active Substance: CYANOCOBALAMIN\PYRIDOXINE HYDROCHLORIDE\RIBOFLAVIN\SODIUM PANTOTHENATE\THIAMINE HYDROCHLORIDE\VITAMIN B COMPLEX
     Dosage: UNK
  4. CRIZOTINIB [Interacting]
     Active Substance: CRIZOTINIB
     Indication: NON-SMALL CELL LUNG CANCER
     Dosage: 250 MILLIGRAM, Q12H (2 X PER DAY 1)
     Dates: start: 20210527, end: 20210707
  5. ASCORBINEZUUR [Concomitant]
     Dosage: TABLET 1000 MG
  6. MACROGOL [Concomitant]
     Active Substance: POLYETHYLENE GLYCOLS
     Dosage: POWDER FOR DRINK
  7. OMEPRAZOLE. [Concomitant]
     Active Substance: OMEPRAZOLE
     Dosage: GASTRO RESISTANT CAPSULE, 20 MG (MILLIGRAM)

REACTIONS (2)
  - Rhabdomyolysis [Recovered/Resolved]
  - Drug interaction [Recovered/Resolved]

NARRATIVE: CASE EVENT DATE: 20210707
